FAERS Safety Report 5309556-8 (Version None)
Quarter: 2007Q2

REPORT INFORMATION
  Report Type: 
  Country: None (occurrence: None)
  Receive Date: 20070427
  Receipt Date: 20070209
  Transmission Date: 20071010
  Serious: No
  Sender: FDA-Public Use
  Company Number: US-GLAXOSMITHKLINE-A0632482A

PATIENT
  Age: 72 Year
  Sex: Male

DRUGS (8)
  1. DEXTROAMPHETAMINE SULFATE [Suspect]
     Indication: DEPRESSION
     Dosage: 15MG TWICE PER DAY
     Route: 048
     Dates: start: 20060101, end: 20060101
  2. VALIUM [Concomitant]
  3. METOPROLOL SUCCINATE [Concomitant]
  4. CYMBALTA [Concomitant]
  5. METHADONE HCL [Concomitant]
  6. DOXAZOSIN MESYLATE [Concomitant]
  7. PRILOSEC [Concomitant]
  8. VITAMINS [Concomitant]

REACTIONS (2)
  - DRUG INEFFECTIVE [None]
  - HYPERHIDROSIS [None]
